FAERS Safety Report 4885619-6 (Version None)
Quarter: 2005Q4

REPORT INFORMATION
  Report Type: 
  Country: None (occurrence: None)
  Receive Date: 20051220
  Receipt Date: 20050927
  Transmission Date: 20060501
  Serious: Yes (Other)
  Sender: FDA-Public Use
  Company Number: HQWYE738329SEP05

PATIENT
  Age: 46 Year
  Sex: Female

DRUGS (2)
  1. EFFEXOR XR [Suspect]
     Indication: DEPRESSION
     Dosage: 75 MG 1X PER 1 DAY
     Dates: start: 20031201
  2. PROZAC [Concomitant]

REACTIONS (2)
  - CONTUSION [None]
  - LYMPHOCYTOSIS [None]
